FAERS Safety Report 23787293 (Version 1)
Quarter: 2024Q2

REPORT INFORMATION
  Report Type: Spontaneous
  Country: US (occurrence: US)
  Receive Date: 20240426
  Receipt Date: 20240426
  Transmission Date: 20240716
  Serious: Yes (Other)
  Sender: FDA-Public Use
  Company Number: US-DRL-USA-LIT/USA/24/0006039

PATIENT
  Age: 14 Year
  Sex: Female

DRUGS (6)
  1. COLCHICINE [Suspect]
     Active Substance: COLCHICINE
     Indication: Erythema multiforme
  2. CYCLOSPORINE [Suspect]
     Active Substance: CYCLOSPORINE
     Indication: Erythema multiforme
  3. ETANERCEPT [Concomitant]
     Active Substance: ETANERCEPT
     Indication: Erythema multiforme
  4. PREDNISONE [Concomitant]
     Active Substance: PREDNISONE
     Indication: Stomatitis
  5. ACYCLOVIR [Concomitant]
     Active Substance: ACYCLOVIR
     Indication: Herpes simplex
  6. DOXYCYCLINE [Concomitant]
     Active Substance: DOXYCYCLINE

REACTIONS (1)
  - Drug ineffective for unapproved indication [Unknown]
